FAERS Safety Report 9943416 (Version 1)
Quarter: 2014Q1

REPORT INFORMATION
  Report Type: Spontaneous
  Country: US (occurrence: US)
  Receive Date: 20140303
  Receipt Date: 20140303
  Transmission Date: 20141002
  Serious: Yes (Hospitalization, Other)
  Sender: FDA-Public Use
  Company Number: US-B.I. PHARMACEUTICALS,INC./RIDGEFIELD-2014-BI-08535BP

PATIENT
  Sex: Male
  Weight: 109 kg

DRUGS (2)
  1. COMBIVENT [Suspect]
     Indication: CHRONIC OBSTRUCTIVE PULMONARY DISEASE
     Dosage: STRENGTH: 18 MCG / 103 MCG
     Route: 055
     Dates: start: 1996, end: 20140223
  2. ALBUTEROL NEBULIZER [Suspect]
     Indication: PRODUCT USED FOR UNKNOWN INDICATION
     Route: 065

REACTIONS (2)
  - Heart rate increased [Recovered/Resolved]
  - Overdose [Unknown]
